FAERS Safety Report 5850451-3 (Version None)
Quarter: 2008Q3

REPORT INFORMATION
  Report Type: 
  Country: None (occurrence: None)
  Receive Date: 20080819
  Receipt Date: 20070810
  Transmission Date: 20090109
  Serious: Yes (Hospitalization)
  Sender: FDA-Public Use
  Company Number: JP-PFIZER INC-2006021356

PATIENT
  Sex: Male

DRUGS (6)
  1. CARDENALIN [Suspect]
     Indication: HYPERTENSION
     Route: 048
     Dates: start: 20060123, end: 20060125
  2. BLINDED DOXAZOSIN [Suspect]
     Indication: DIABETIC NEPHROPATHY
     Dosage: DAILY DOSE:10MG
     Route: 048
     Dates: start: 20050808, end: 20051030
  3. BLINDED DOXAZOSIN [Suspect]
     Indication: DIABETES MELLITUS
     Dosage: DAILY DOSE:20MG
     Route: 048
     Dates: start: 20051031, end: 20051218
  4. BLINDED DOXAZOSIN [Suspect]
     Dosage: DAILY DOSE:40MG
     Route: 047
  5. AMLODIPINE BESYLATE [Concomitant]
     Indication: HYPERTENSION
     Route: 048
  6. ENALAPRIL MALEATE [Concomitant]
     Indication: HYPERTENSION
     Route: 048

REACTIONS (9)
  - AORTIC DISORDER [None]
  - BLOOD CREATININE INCREASED [None]
  - BLOOD PRESSURE DECREASED [None]
  - BLOOD UREA INCREASED [None]
  - CAROTID ARTERY STENOSIS [None]
  - CEREBRAL INFARCTION [None]
  - ELECTROCARDIOGRAM ST SEGMENT ELEVATION [None]
  - HAEMATOCRIT DECREASED [None]
  - HAEMOGLOBIN DECREASED [None]
